FAERS Safety Report 21453381 (Version 5)
Quarter: 2023Q4

REPORT INFORMATION
  Report Type: Report from Study
  Country: US (occurrence: US)
  Receive Date: 20221013
  Receipt Date: 20231226
  Transmission Date: 20240110
  Serious: Yes (Other)
  Sender: FDA-Public Use
  Company Number: US-ABBVIE-4152866

PATIENT
  Sex: Female
  Weight: 57.6 kg

DRUGS (2)
  1. HUMIRA [Suspect]
     Active Substance: ADALIMUMAB
     Indication: Crohn^s disease
     Route: 058
  2. MODERNA COVID-19 VACCINE [Concomitant]
     Active Substance: ELASOMERAN
     Indication: COVID-19 immunisation
     Dosage: TIME INTERVAL: TOTAL: 1ST DOSE MODERNA, ONCE
     Route: 030

REACTIONS (4)
  - Hernia [Unknown]
  - Intestinal obstruction [Recovering/Resolving]
  - Gastrointestinal scarring [Unknown]
  - Abdominal wall operation [Recovering/Resolving]

NARRATIVE: CASE EVENT DATE: 20230101
